FAERS Safety Report 8122204-7 (Version None)
Quarter: 2012Q1

REPORT INFORMATION
  Report Type: 
  Country: None (occurrence: None)
  Receive Date: 20120208
  Receipt Date: 20120130
  Transmission Date: 20120608
  Serious: Yes (Disabling)
  Sender: FDA-Public Use
  Company Number: US-BAYER-2011-090602

PATIENT
  Age: 43 Year
  Sex: Female
  Weight: 99.773 kg

DRUGS (21)
  1. YASMIN [Suspect]
     Dosage: UNK
     Route: 048
     Dates: start: 20060101, end: 20080701
  2. HYDROCHLOROTHIAZIDE [Concomitant]
     Dosage: 12.5 MG, QD
     Route: 048
  3. EFFEXOR [Concomitant]
     Dosage: 225 MG, QD
     Route: 048
  4. DROSPIRENONE AND ETHINYL ESTRADIOL [Suspect]
     Dosage: UNK
     Route: 048
     Dates: start: 20080801, end: 20090901
  5. NEXIUM [Concomitant]
     Dosage: 40 MG, QD
     Route: 048
  6. LABETALOL HCL [Concomitant]
     Dosage: 100 MG, QD
     Route: 048
  7. SIMVASTATIN [Concomitant]
     Dosage: 40 MG, QD
     Route: 048
  8. AZITHROMYCIN [Concomitant]
     Dosage: 250 MG, UNK
     Dates: start: 20090908
  9. OMEPRAZOLE [Concomitant]
     Indication: ABDOMINAL PAIN UPPER
  10. AMBIEN [Concomitant]
     Dosage: 10 MG, HS
     Route: 048
  11. DILTIAZEM CD [Concomitant]
     Dosage: 240 MG, QD
     Route: 048
  12. NYSTATIN W/TRIAMCINOLONE [NYSTATIN,TRIAMCINOLONE] [Concomitant]
     Dosage: UNK
     Dates: start: 20090918
  13. CEFPODOXIME PROXETIL [Concomitant]
     Dosage: UNK
     Dates: start: 20090701
  14. PROVENTIL-HFA [Concomitant]
     Dosage: UNK
     Dates: start: 20090806
  15. PREDNISONE [Concomitant]
     Dosage: 5 MG, UNK
     Dates: start: 20090916
  16. NEURONTIN [Concomitant]
     Dosage: 300 MG, QD
     Route: 048
  17. PRUVATE [Concomitant]
     Dosage: UNK
     Dates: start: 20090706
  18. INDOCIN [Concomitant]
     Dosage: 75 MG, QD
     Route: 048
  19. FLEXERAL [Concomitant]
     Indication: FIBROMYALGIA
  20. HYDROCODONE [Concomitant]
     Indication: FIBROMYALGIA
  21. FLUCONAZOLE [Concomitant]
     Dosage: 150 MG, UNK
     Dates: start: 20090918

REACTIONS (10)
  - CEREBROVASCULAR ACCIDENT [None]
  - QUALITY OF LIFE DECREASED [None]
  - PAIN [None]
  - DISABILITY [None]
  - LEARNING DISABILITY [None]
  - AMNESIA [None]
  - DEFORMITY [None]
  - INJURY [None]
  - ANXIETY [None]
  - COGNITIVE DISORDER [None]
